FAERS Safety Report 19177242 (Version 2)
Quarter: 2021Q2

REPORT INFORMATION
  Report Type: Spontaneous
  Country: CA (occurrence: CA)
  Receive Date: 20210425
  Receipt Date: 20210502
  Transmission Date: 20210717
  Serious: Yes (Other)
  Sender: FDA-Public Use
  Company Number: CA-JNJFOC-20210442007

PATIENT
  Age: 60 Year
  Sex: Female

DRUGS (1)
  1. INFLIXIMAB, RECOMBINANT [Suspect]
     Active Substance: INFLIXIMAB
     Indication: CROHN^S DISEASE
     Route: 042

REACTIONS (7)
  - Crohn^s disease [Unknown]
  - Faecal calprotectin increased [Unknown]
  - Tooth disorder [Unknown]
  - Off label use [Unknown]
  - Therapeutic response delayed [Unknown]
  - Therapeutic response shortened [Unknown]
  - Hyperventilation [Unknown]
